FAERS Safety Report 22305866 (Version 1)
Quarter: 2023Q2

REPORT INFORMATION
  Report Type: Spontaneous
  Country: US (occurrence: US)
  Receive Date: 20230511
  Receipt Date: 20230511
  Transmission Date: 20230721
  Serious: Yes (Other)
  Sender: FDA-Public Use
  Company Number: US-CADILA HEALTHCARE LIMITED-US-ZYDUS-092144

PATIENT

DRUGS (1)
  1. LENALIDOMIDE [Suspect]
     Active Substance: LENALIDOMIDE
     Indication: Plasma cell myeloma in remission
     Dosage: 5 MILLIGRAM, QD
     Route: 048
     Dates: start: 202303

REACTIONS (9)
  - Neuropathy peripheral [Unknown]
  - Paraesthesia [Unknown]
  - Limb discomfort [Unknown]
  - Fatigue [Unknown]
  - Diarrhoea [Unknown]
  - Quality of life decreased [Unknown]
  - Palmar-plantar erythrodysaesthesia syndrome [Unknown]
  - Pain [Unknown]
  - Constipation [Unknown]

NARRATIVE: CASE EVENT DATE: 20230101
